FAERS Safety Report 5653679-0 (Version None)
Quarter: 2008Q1

REPORT INFORMATION
  Report Type: 
  Country: None (occurrence: None)
  Receive Date: 20080306
  Receipt Date: 20080303
  Transmission Date: 20080703
  Serious: Yes (Other)
  Sender: FDA-Public Use
  Company Number: DE-ALLERGAN-0802575US

PATIENT
  Sex: Female

DRUGS (1)
  1. LUMIGAN [Suspect]
     Indication: GLAUCOMA
     Dosage: UNK, QD
     Route: 047
     Dates: start: 20080201

REACTIONS (5)
  - ASTHENOPIA [None]
  - ERYTHEMA OF EYELID [None]
  - EYELIDS PRURITUS [None]
  - HYPERTENSION [None]
  - VISION BLURRED [None]
